FAERS Safety Report 7773666-6 (Version None)
Quarter: 2011Q3

REPORT INFORMATION
  Report Type: 
  Country: None (occurrence: None)
  Receive Date: 20110923
  Receipt Date: 20110910
  Transmission Date: 20111222
  Serious: Yes (Other)
  Sender: FDA-Public Use
  Company Number: US-PAR PHARMACEUTICAL, INC-2011SCPR003240

PATIENT

DRUGS (4)
  1. MELPHALAN HYDROCHLORIDE [Concomitant]
     Indication: ESSENTIAL THROMBOCYTHAEMIA
     Dosage: 2 MG DAILY
     Route: 065
     Dates: start: 19980101
  2. ASPIRIN [Concomitant]
     Indication: ESSENTIAL THROMBOCYTHAEMIA
     Dosage: UNK, UNKNOWN
     Route: 065
     Dates: start: 19920101, end: 20020101
  3. HYDROXYUREA [Suspect]
     Indication: ESSENTIAL THROMBOCYTHAEMIA
     Dosage: UNK, UNKNOWN
     Route: 065
     Dates: start: 19920101, end: 20020101
  4. PHOSPHORUS P32 [Concomitant]
     Indication: ESSENTIAL THROMBOCYTHAEMIA
     Dosage: 1 DF, SINGLE
     Route: 065
     Dates: start: 20010101

REACTIONS (5)
  - MYELOFIBROSIS [None]
  - DISEASE PROGRESSION [None]
  - NEUTROPENIA [None]
  - DRUG RESISTANCE [None]
  - TOXICITY TO VARIOUS AGENTS [None]
